FAERS Safety Report 6981682-7 (Version None)
Quarter: 2010Q3

REPORT INFORMATION
  Report Type: 
  Country: None (occurrence: None)
  Receive Date: 20100914
  Receipt Date: 20090912
  Transmission Date: 20110219
  Serious: No
  Sender: FDA-Public Use
  Company Number: US-PFIZER INC-2009270208

PATIENT
  Sex: Male

DRUGS (3)
  1. LYRICA [Suspect]
  2. NORVASC [Concomitant]
     Indication: HYPERTENSION
  3. MOBIC [Concomitant]

REACTIONS (2)
  - ALTERED VISUAL DEPTH PERCEPTION [None]
  - IMPAIRED DRIVING ABILITY [None]
